FAERS Safety Report 4343144-5 (Version None)
Quarter: 2004Q2

REPORT INFORMATION
  Report Type: 
  Country: None (occurrence: None)
  Receive Date: 20040413
  Receipt Date: 20040329
  Transmission Date: 20050107
  Serious: Yes (Hospitalization, Other)
  Sender: FDA-Public Use
  Company Number: 200410086BCA

PATIENT
  Age: 65 Year
  Sex: Female
  Weight: 32.5 kg

DRUGS (18)
  1. GAMIMUNE N 10% [Suspect]
     Indication: MULTIPLE MYELOMA
     Dosage: 10 G, Q3WK, INTRAVENOUS
     Route: 042
     Dates: start: 20030522
  2. AVAPRO [Concomitant]
  3. BENADRYL ^ACHE^ [Concomitant]
  4. CARDIZEM CD [Concomitant]
  5. EPREX [Concomitant]
  6. FENTANYL DISC [Concomitant]
  7. FLUCONAZOLE [Concomitant]
  8. MELPHALAN [Concomitant]
  9. METOCLOPRAMIDE [Concomitant]
  10. MORPHINE SULFATE [Concomitant]
  11. NOVOPREDNISONE [Concomitant]
  12. PAMIDRONATE DISODIUM [Concomitant]
  13. PANTOLOC [Concomitant]
  14. REPLAVITE [Concomitant]
  15. ROCALCITRIOL [Concomitant]
  16. VENOFER [Concomitant]
  17. ZOFRAN [Concomitant]
  18. ZOPICLONE [Concomitant]

REACTIONS (5)
  - FEELING ABNORMAL [None]
  - HYPERSENSITIVITY [None]
  - PRURITUS [None]
  - RASH MACULAR [None]
  - URTICARIA [None]
